FAERS Safety Report 7745525 (Version 2)
Quarter: 2013Q2

REPORT INFORMATION
  Report Type: Spontaneous
  Country: US (occurrence: US)
  Receive Date: 20110103
  Receipt Date: 20130527
  Transmission Date: 20140414
  Serious: No
  Sender: FDA-Public Use
  Company Number: US-BIOGENIDEC-2010BI045114

PATIENT
  Age: 40 Year
  Sex: Female

DRUGS (1)
  1. TYSABRI [Suspect]
     Indication: MULTIPLE SCLEROSIS
     Route: 042
     Dates: start: 20080206

REACTIONS (3)
  - Nervousness [Not Recovered/Not Resolved]
  - Eczema [Not Recovered/Not Resolved]
  - Multiple sclerosis relapse [Recovered/Resolved]
